FAERS Safety Report 21123460 (Version 2)
Quarter: 2022Q3

REPORT INFORMATION
  Report Type: Spontaneous
  Country: BR (occurrence: BR)
  Receive Date: 20220724
  Receipt Date: 20220728
  Transmission Date: 20221026
  Serious: Yes (Hospitalization)
  Sender: FDA-Public Use
  Company Number: BR-PFIZER INC-2019245106

PATIENT
  Age: 54 Year
  Sex: Male

DRUGS (1)
  1. ENBREL [Suspect]
     Active Substance: ETANERCEPT
     Indication: Product used for unknown indication
     Dosage: UNK
     Route: 065
     Dates: start: 20181103

REACTIONS (10)
  - Dizziness [Unknown]
  - Blood pressure increased [Unknown]
  - Pyrexia [Unknown]
  - Joint range of motion decreased [Unknown]
  - Wrong technique in product usage process [Unknown]
  - Muscle injury [Unknown]
  - Abdominal pain upper [Unknown]
  - Malaise [Unknown]
  - Fatigue [Unknown]
  - Injection site pain [Recovered/Resolved]

NARRATIVE: CASE EVENT DATE: 20190530
